FAERS Safety Report 15810342 (Version 22)
Quarter: 2021Q1

REPORT INFORMATION
  Report Type: Other
  Country: CA (occurrence: CA)
  Receive Date: 20190111
  Receipt Date: 20210327
  Transmission Date: 20210419
  Serious: Yes (Hospitalization, Other)
  Sender: FDA-Public Use
  Company Number: CA-ROCHE-1768995

PATIENT
  Age: 52 Year
  Sex: Female
  Weight: 64.5 kg

DRUGS (14)
  1. TECTA [Concomitant]
     Active Substance: PANTOPRAZOLE MAGNESIUM
  2. ACTEMRA [Suspect]
     Active Substance: TOCILIZUMAB
     Indication: RHEUMATOID ARTHRITIS
     Route: 042
     Dates: start: 20160524, end: 20200127
  3. METHOTREXATE. [Concomitant]
     Active Substance: METHOTREXATE
  4. PREMARIN [Concomitant]
     Active Substance: ESTROGENS, CONJUGATED
  5. FOLIC ACID. [Concomitant]
     Active Substance: FOLIC ACID
  6. DOMPERIDONE [Concomitant]
     Active Substance: DOMPERIDONE
  7. AXERT [Concomitant]
     Active Substance: ALMOTRIPTAN MALATE
  8. ACTEMRA [Suspect]
     Active Substance: TOCILIZUMAB
     Route: 042
     Dates: start: 20200323
  9. IMURAN [Concomitant]
     Active Substance: AZATHIOPRINE
  10. PERCOCET [Concomitant]
     Active Substance: ACETAMINOPHEN\OXYCODONE HYDROCHLORIDE
  11. SENOKOT [Concomitant]
     Active Substance: SENNOSIDES
  12. SERC [Concomitant]
     Indication: DIZZINESS
     Dates: start: 20210226
  13. ACTEMRA [Suspect]
     Active Substance: TOCILIZUMAB
     Dosage: ONGOING: YES
     Route: 042
     Dates: start: 20200224
  14. HUMIRA [Concomitant]
     Active Substance: ADALIMUMAB

REACTIONS (48)
  - Asthenia [Recovering/Resolving]
  - Neck pain [Not Recovered/Not Resolved]
  - Joint swelling [Unknown]
  - Weight increased [Unknown]
  - Migraine [Unknown]
  - Oral infection [Not Recovered/Not Resolved]
  - Dizziness [Recovered/Resolved]
  - Blood pressure systolic increased [Unknown]
  - Dyspepsia [Recovered/Resolved]
  - Ear pain [Not Recovered/Not Resolved]
  - Wisdom teeth removal [Not Recovered/Not Resolved]
  - Suspected COVID-19 [Recovered/Resolved]
  - Ear infection [Not Recovered/Not Resolved]
  - C-reactive protein increased [Unknown]
  - Fatigue [Not Recovered/Not Resolved]
  - Musculoskeletal stiffness [Not Recovered/Not Resolved]
  - Abdominal pain upper [Not Recovered/Not Resolved]
  - Rhinorrhoea [Unknown]
  - Cardiac ventricular disorder [Unknown]
  - Arrhythmia [Unknown]
  - Limb mass [Unknown]
  - Urticaria [Unknown]
  - Heart rate increased [Unknown]
  - Swelling [Not Recovered/Not Resolved]
  - Animal bite [Not Recovered/Not Resolved]
  - Erythema [Not Recovered/Not Resolved]
  - Pain [Not Recovered/Not Resolved]
  - Illness [Not Recovered/Not Resolved]
  - Dyspnoea [Recovered/Resolved]
  - Back pain [Unknown]
  - Chest pain [Recovering/Resolving]
  - Nausea [Unknown]
  - Gingivitis [Not Recovered/Not Resolved]
  - Arthralgia [Not Recovered/Not Resolved]
  - Laryngitis [Recovering/Resolving]
  - Feeling hot [Not Recovered/Not Resolved]
  - Nasal discomfort [Unknown]
  - Nasopharyngitis [Unknown]
  - Blood pressure increased [Unknown]
  - Weight decreased [Unknown]
  - Headache [Recovered/Resolved]
  - Heart rate decreased [Unknown]
  - Tooth abscess [Recovered/Resolved]
  - Vomiting [Unknown]
  - Oropharyngeal pain [Unknown]
  - Insomnia [Not Recovered/Not Resolved]
  - Infusion related reaction [Recovered/Resolved]
  - Pyrexia [Unknown]

NARRATIVE: CASE EVENT DATE: 201612
